FAERS Safety Report 9352476 (Version 1)
Quarter: 2013Q2

REPORT INFORMATION
  Report Type: Spontaneous
  Country: US (occurrence: US)
  Receive Date: 20130617
  Receipt Date: 20130617
  Transmission Date: 20140414
  Serious: Yes (Other)
  Sender: FDA-Public Use
  Company Number: US-RB-003867-08

PATIENT
  Age: 20 Year
  Sex: Male

DRUGS (4)
  1. SUBOXONE TABLET [Suspect]
     Indication: DRUG DEPENDENCE
     Route: 060
     Dates: start: 2005, end: 200807
  2. SUBOXONE TABLET [Suspect]
     Route: 060
     Dates: start: 200807, end: 2008
  3. SUBOXONE TABLET [Suspect]
     Route: 060
     Dates: start: 2008
  4. KLONOPIN [Concomitant]
     Indication: ANXIETY
     Route: 048
     Dates: start: 2003

REACTIONS (3)
  - Hepatic enzyme increased [Unknown]
  - Hepatitis C [Not Recovered/Not Resolved]
  - Depression [Not Recovered/Not Resolved]
